FAERS Safety Report 16178773 (Version 2)
Quarter: 2022Q2

REPORT INFORMATION
  Report Type: Spontaneous
  Country: US (occurrence: US)
  Receive Date: 20190410
  Receipt Date: 20220418
  Transmission Date: 20220721
  Serious: Yes (Hospitalization)
  Sender: FDA-Public Use
  Company Number: US-TEVA-2019-US-1035496

PATIENT
  Age: 22 Year
  Sex: Male

DRUGS (4)
  1. CLOZAPINE [Suspect]
     Active Substance: CLOZAPINE
     Indication: Schizophrenia
     Route: 065
  2. BENZTROPINE [Suspect]
     Active Substance: BENZTROPINE
     Indication: Muscle rigidity
     Route: 042
  3. BENZTROPINE [Suspect]
     Active Substance: BENZTROPINE
     Indication: Muscle rigidity
     Route: 048
  4. ZOLPIDEM [Concomitant]
     Active Substance: ZOLPIDEM TARTRATE
     Dosage: RECEIVED ONLY FOR TWO DAYS
     Route: 065

REACTIONS (6)
  - Malignant catatonia [Recovering/Resolving]
  - Withdrawal catatonia [Recovering/Resolving]
  - Urinary tract infection [Unknown]
  - Urinary retention [Recovering/Resolving]
  - Condition aggravated [Recovering/Resolving]
  - Fall [Unknown]
